FAERS Safety Report 25417241 (Version 1)
Quarter: 2025Q2

REPORT INFORMATION
  Report Type: Report from Study
  Country: US (occurrence: US)
  Receive Date: 20250610
  Receipt Date: 20250610
  Transmission Date: 20250717
  Serious: Yes (Other)
  Sender: UCB
  Company Number: US-UCBSA-2025033639

PATIENT
  Age: 5 Year
  Weight: 19.8 kg

DRUGS (1)
  1. FINTEPLA [Suspect]
     Active Substance: FENFLURAMINE
     Indication: Product used for unknown indication
     Dates: start: 202306

REACTIONS (3)
  - Non-compaction cardiomyopathy [Unknown]
  - Right atrial dilatation [Unknown]
  - Bicuspid aortic valve [Unknown]

NARRATIVE: CASE EVENT DATE: 20250516
